FAERS Safety Report 21896231 (Version 1)
Quarter: 2023Q1

REPORT INFORMATION
  Report Type: Spontaneous
  Country: TR (occurrence: TR)
  Receive Date: 20230123
  Receipt Date: 20230123
  Transmission Date: 20230418
  Serious: Yes (Death, Life-Threatening, Other)
  Sender: FDA-Public Use
  Company Number: TR-AMGEN-TURSP2023008940

PATIENT

DRUGS (7)
  1. PANITUMUMAB [Suspect]
     Active Substance: PANITUMUMAB
     Indication: Colorectal cancer metastatic
     Dosage: UNK
     Route: 065
  2. BEVACIZUMAB [Concomitant]
     Active Substance: BEVACIZUMAB
     Route: 065
  3. CETUXIMAB [Concomitant]
     Active Substance: CETUXIMAB
     Indication: Colorectal cancer metastatic
     Dosage: UNK
  4. CAPECITABINE [Concomitant]
     Active Substance: CAPECITABINE
     Indication: Colorectal cancer metastatic
     Dosage: UNK
  5. OXALIPLATIN [Concomitant]
     Active Substance: OXALIPLATIN
     Indication: Colorectal cancer metastatic
     Dosage: UNK
  6. LEUCOVORIN [Concomitant]
     Active Substance: LEUCOVORIN
     Indication: Colorectal cancer metastatic
     Dosage: UNK
  7. FLUOROURACIL [Concomitant]
     Active Substance: FLUOROURACIL
     Indication: Colorectal cancer metastatic
     Dosage: UNK

REACTIONS (13)
  - Toxicity to various agents [Fatal]
  - Neutropenia [Unknown]
  - Asthenia [Unknown]
  - Diarrhoea [Unknown]
  - Hypertension [Unknown]
  - Stomatitis [Unknown]
  - Thrombocytopenia [Unknown]
  - Anaemia [Unknown]
  - Proteinuria [Unknown]
  - Gastrointestinal perforation [Unknown]
  - Adverse event [Unknown]
  - Colorectal cancer metastatic [Unknown]
  - Therapy partial responder [Unknown]
